FAERS Safety Report 8478723-7 (Version None)
Quarter: 2012Q2

REPORT INFORMATION
  Report Type: 
  Country: None (occurrence: None)
  Receive Date: 20120621
  Receipt Date: 20111006
  Transmission Date: 20120825
  Serious: Yes (Death, Life-Threatening)
  Sender: FDA-Public Use
  Company Number: DSA_57894_2012

PATIENT
  Age: 78 Year
  Sex: Male

DRUGS (27)
  1. OXALIPLATIN [Suspect]
     Indication: RECTAL CANCER
     Dosage: 120 MG; DAILY INTRAVENOUS DRIP;
     Route: 041
     Dates: start: 20101026, end: 20101109
  2. OXALIPLATIN [Suspect]
     Indication: RECTAL CANCER
     Dosage: 120 MG; DAILY INTRAVENOUS DRIP;
     Route: 041
     Dates: start: 20101124, end: 20101124
  3. OXALIPLATIN [Suspect]
     Indication: RECTAL CANCER
     Dosage: 120 MG; DAILY INTRAVENOUS DRIP;
     Route: 041
     Dates: start: 20101207, end: 20101207
  4. OXALIPLATIN [Suspect]
     Indication: RECTAL CANCER
     Dosage: 120 MG; DAILY INTRAVENOUS DRIP;
     Route: 041
     Dates: start: 20110118, end: 20110118
  5. OXALIPLATIN [Suspect]
     Indication: RECTAL CANCER
     Dosage: 120 MG; DAILY INTRAVENOUS DRIP;
     Route: 041
     Dates: start: 20101221, end: 20101221
  6. OXALIPLATIN [Suspect]
     Indication: RECTAL CANCER
     Dosage: 120 MG; DAILY INTRAVENOUS DRIP;
     Route: 041
     Dates: start: 20110104, end: 20110104
  7. OXALIPLATIN [Suspect]
     Indication: RECTAL CANCER
     Dosage: 120 MG; DAILY INTRAVENOUS DRIP;
     Route: 041
     Dates: start: 20110201, end: 20110201
  8. FLUOROURACIL [Suspect]
     Indication: RECTAL CANCER
     Dosage: 3500 MG DAILY INTRAVENOUS DRIP
     Route: 041
     Dates: start: 20110118, end: 20110118
  9. FLUOROURACIL [Suspect]
     Indication: RECTAL CANCER
     Dosage: 3500 MG DAILY INTRAVENOUS DRIP
     Route: 041
     Dates: start: 20101207, end: 20101207
  10. FLUOROURACIL [Suspect]
     Indication: RECTAL CANCER
     Dosage: 3500 MG DAILY INTRAVENOUS DRIP
     Route: 041
     Dates: start: 20110104, end: 20110104
  11. FLUOROURACIL [Suspect]
     Indication: RECTAL CANCER
     Dosage: 3500 MG DAILY INTRAVENOUS DRIP
     Route: 041
     Dates: start: 20101124, end: 20101124
  12. FLUOROURACIL [Suspect]
     Indication: RECTAL CANCER
     Dosage: 3500 MG DAILY INTRAVENOUS DRIP
     Route: 041
     Dates: start: 20101221, end: 20101221
  13. FLUOROURACIL [Suspect]
     Indication: RECTAL CANCER
     Dosage: 3500 MG DAILY INTRAVENOUS DRIP
     Route: 041
     Dates: start: 20101026, end: 20101026
  14. FLUOROURACIL [Suspect]
     Indication: RECTAL CANCER
     Dosage: 3500 MG DAILY INTRAVENOUS DRIP
     Route: 041
     Dates: start: 20101109, end: 20101109
  15. OXALIPLATIN [Suspect]
     Indication: RECTAL CANCER
     Dosage: 120 MG; DAILY INTRAVENOUS BOLUS
     Route: 040
     Dates: start: 20110201, end: 20110201
  16. OXALIPLATIN [Suspect]
     Indication: RECTAL CANCER
     Dosage: 120 MG; DAILY INTRAVENOUS BOLUS
     Route: 040
     Dates: start: 20101109, end: 20101109
  17. FLUOROURACIL [Suspect]
     Indication: RECTAL CANCER
     Dosage: DF
     Dates: start: 20101109, end: 20101109
  18. FLUOROURACIL [Suspect]
     Indication: RECTAL CANCER
     Dosage: DF
     Dates: start: 20101207, end: 20101207
  19. FLUOROURACIL [Suspect]
     Indication: RECTAL CANCER
     Dosage: DF
     Dates: start: 20110118, end: 20110118
  20. LEUCOVORIN CALCIUM [Concomitant]
  21. FLUOROURACIL [Suspect]
     Indication: RECTAL CANCER
     Dosage: 500 MG; DAILY INTRAVENOUS BOLUS
     Route: 040
     Dates: start: 20110104, end: 20110104
  22. FLUOROURACIL [Suspect]
     Indication: RECTAL CANCER
     Dosage: 500 MG; DAILY INTRAVENOUS BOLUS
     Route: 040
     Dates: start: 20110104, end: 20110104
  23. FLUOROURACIL [Suspect]
     Indication: RECTAL CANCER
     Dosage: 500 MG; DAILY INTRAVENOUS BOLUS
     Route: 040
     Dates: start: 20101221, end: 20101221
  24. FLUOROURACIL [Suspect]
     Indication: RECTAL CANCER
     Dosage: 500 MG; DAILY INTRAVENOUS BOLUS
     Route: 040
     Dates: start: 20101124, end: 20101124
  25. FLUOROURACIL [Suspect]
     Indication: RECTAL CANCER
     Dosage: 500 MG; DAILY INTRAVENOUS BOLUS
     Route: 040
     Dates: start: 20101026, end: 20101026
  26. FLUOROURACIL [Suspect]
     Indication: RECTAL CANCER
     Dosage: 500 MG; DAILY INTRAVENOUS BOLUS
     Route: 040
     Dates: start: 20110201, end: 20110201
  27. FLUOROURACIL [Suspect]
     Indication: RECTAL CANCER
     Dosage: 500 MG; DAILY INTRAVENOUS BOLUS
     Route: 040
     Dates: start: 20101124, end: 20101124

REACTIONS (5)
  - INTERSTITIAL LUNG DISEASE [None]
  - MALAISE [None]
  - RECTAL CANCER [None]
  - RESPIRATORY DISTRESS [None]
  - CONDITION AGGRAVATED [None]
